FAERS Safety Report 23884603 (Version 3)
Quarter: 2024Q3

REPORT INFORMATION
  Report Type: Report from Study
  Country: US (occurrence: US)
  Receive Date: 20240522
  Receipt Date: 20240703
  Transmission Date: 20241016
  Serious: Yes (Hospitalization)
  Sender: EISAI
  Company Number: US-Eisai-EC-2024-166019

PATIENT
  Age: 76 Year
  Sex: Male
  Weight: 72.6 kg

DRUGS (2)
  1. LENVATINIB MESYLATE [Suspect]
     Active Substance: LENVATINIB MESYLATE
     Indication: Prostate cancer metastatic
     Route: 048
     Dates: start: 20230322, end: 20240505
  2. PEMBROLIZUMAB [Suspect]
     Active Substance: PEMBROLIZUMAB
     Indication: Prostate cancer metastatic
     Route: 042
     Dates: start: 20230322, end: 20240506

REACTIONS (1)
  - Embolism [Recovered/Resolved]

NARRATIVE: CASE EVENT DATE: 20240513
